FAERS Safety Report 12341614 (Version 1)
Quarter: 2016Q2

REPORT INFORMATION
  Report Type: Spontaneous
  Country: US (occurrence: None)
  Receive Date: 20160505
  Receipt Date: 20160505
  Transmission Date: 20160815
  Serious: Yes (Hospitalization)
  Sender: FDA-Public Use
  Company Number: None

PATIENT
  Age: 2 Year
  Sex: Female
  Weight: 10.3 kg

DRUGS (3)
  1. THIOGUANINE (6-TG) [Suspect]
     Active Substance: THIOGUANINE ANHYDROUS
     Dates: end: 20160412
  2. CYTARABINE. [Suspect]
     Active Substance: CYTARABINE
     Dates: end: 20160413
  3. DAUNORUBICIN [Suspect]
     Active Substance: DAUNORUBICIN
     Dates: end: 20160412

REACTIONS (11)
  - Fluid overload [None]
  - Febrile neutropenia [None]
  - Leukaemoid reaction [None]
  - Nasal congestion [None]
  - Nephropathy toxic [None]
  - Pneumonia [None]
  - Atelectasis [None]
  - Human metapneumovirus test positive [None]
  - Stridor [None]
  - Acute kidney injury [None]
  - Renal failure [None]

NARRATIVE: CASE EVENT DATE: 20160422
